FAERS Safety Report 5959740-5 (Version None)
Quarter: 2008Q4

REPORT INFORMATION
  Report Type: 
  Country: None (occurrence: None)
  Receive Date: 20081119
  Receipt Date: 20081119
  Transmission Date: 20090506
  Serious: Yes (Other)
  Sender: FDA-Public Use
  Company Number: None

PATIENT
  Age: 68 Year
  Sex: Male
  Weight: 79 kg

DRUGS (8)
  1. HEPARIN [Suspect]
     Indication: PULMONARY EMBOLISM
     Dosage: VARIABLE IV CONTINUOUS
     Route: 042
     Dates: start: 20081016, end: 20081021
  2. GANCICLOVIR [Concomitant]
  3. INSULIN [Concomitant]
  4. MG SULFATE [Concomitant]
  5. METHYLPREDNISOLONE 16MG TAB [Concomitant]
  6. LANSOPRAZOLE [Concomitant]
  7. TERAZOSIN HCL [Concomitant]
  8. ACETAMINOPHEN [Concomitant]

REACTIONS (1)
  - HEPARIN-INDUCED THROMBOCYTOPENIA [None]
